FAERS Safety Report 11996147 (Version 1)
Quarter: 2016Q1

REPORT INFORMATION
  Report Type: Not Available
  Country: FR (occurrence: FR)
  Receive Date: 20160203
  Receipt Date: 20160203
  Transmission Date: 20160526
  Serious: Yes (Other)
  Sender: FDA-Public Use
  Company Number: FR-PURDUE PHARMA-GBR-2016-0033701

PATIENT
  Age: 61 Year
  Sex: Male

DRUGS (13)
  1. RIFINAH [Interacting]
     Active Substance: ISONIAZID\RIFAMPIN
     Indication: PRODUCT USED FOR UNKNOWN INDICATION
     Dosage: 2 DF, DAILY
     Route: 048
     Dates: start: 20160105, end: 20160106
  2. INEXIUM                            /01479302/ [Concomitant]
     Active Substance: ESOMEPRAZOLE MAGNESIUM
     Dosage: 1 DF, DAILY
  3. OXYCONTIN [Interacting]
     Active Substance: OXYCODONE HYDROCHLORIDE
     Dosage: UNK
     Route: 048
     Dates: start: 20160107
  4. ALPRAZOLAM. [Concomitant]
     Active Substance: ALPRAZOLAM
     Dosage: 0.5 MG, BID
  5. OXYCONTIN [Suspect]
     Active Substance: OXYCODONE HYDROCHLORIDE
     Indication: PRODUCT USED FOR UNKNOWN INDICATION
     Dosage: 80 MG, BID
     Route: 048
  6. EFFENTORA [Interacting]
     Active Substance: FENTANYL CITRATE
     Indication: PRODUCT USED FOR UNKNOWN INDICATION
     Dosage: 1200 ?G [200 ?G 6 TIMES A DAY]
     Route: 048
  7. CITALOPRAM [Concomitant]
     Active Substance: CITALOPRAM HYDROBROMIDE
     Dosage: 20 MG, BID
  8. METHOTREXATE [Concomitant]
     Active Substance: METHOTREXATE
     Dosage: 1.5 MG, WEEKLY
     Dates: start: 201511
  9. LYRICA [Concomitant]
     Active Substance: PREGABALIN
     Dosage: 25 MG, TID
  10. EFFENTORA [Interacting]
     Active Substance: FENTANYL CITRATE
     Dosage: UNK
     Route: 048
     Dates: start: 20160107
  11. EFFENTORA [Interacting]
     Active Substance: FENTANYL CITRATE
     Dosage: 1200 ?G [200 ?G 6 TIMES A DAY]
     Route: 048
  12. OXYCONTIN [Interacting]
     Active Substance: OXYCODONE HYDROCHLORIDE
     Dosage: 80 MG, BID
     Route: 048
  13. METEOSPASMYL [Concomitant]
     Active Substance: ALVERINE CITRATE\DIMETHICONE
     Dosage: 20 MG, TID

REACTIONS (7)
  - Chills [Recovered/Resolved]
  - Asthenia [Not Recovered/Not Resolved]
  - Drug interaction [Unknown]
  - Irritability [Recovered/Resolved]
  - Tremor [Recovered/Resolved]
  - Drug withdrawal syndrome [Recovering/Resolving]
  - Pain in extremity [Recovered/Resolved]

NARRATIVE: CASE EVENT DATE: 20160106
